FAERS Safety Report 7698982-8 (Version None)
Quarter: 2011Q3

REPORT INFORMATION
  Report Type: 
  Country: None (occurrence: None)
  Receive Date: 20110819
  Receipt Date: 20110811
  Transmission Date: 20111222
  Serious: Yes (Hospitalization, Other)
  Sender: FDA-Public Use
  Company Number: SI-ABBOTT-11P-261-0731181-00

PATIENT
  Sex: Female
  Weight: 68 kg

DRUGS (2)
  1. METHOTREXATE [Concomitant]
     Indication: PRODUCT USED FOR UNKNOWN INDICATION
     Route: 048
     Dates: start: 20000101, end: 20100914
  2. HUMIRA [Suspect]
     Indication: RHEUMATOID ARTHRITIS
     Route: 058
     Dates: start: 20060101, end: 20100914

REACTIONS (10)
  - URINARY TRACT INFECTION [None]
  - ABDOMINAL PAIN [None]
  - PROTEUS INFECTION [None]
  - PYONEPHROSIS [None]
  - DYSURIA [None]
  - NEPHROLITHIASIS [None]
  - RENAL CYST [None]
  - RHEUMATOID ARTHRITIS [None]
  - ARTHROPATHY [None]
  - CALCULUS URETERIC [None]
